FAERS Safety Report 7431902-X (Version None)
Quarter: 2011Q2

REPORT INFORMATION
  Report Type: 
  Country: None (occurrence: None)
  Receive Date: 20110422
  Receipt Date: 20110419
  Transmission Date: 20111010
  Serious: Yes (Other)
  Sender: FDA-Public Use
  Company Number: US-PFIZER INC-2011085562

PATIENT

DRUGS (1)
  1. SUTENT [Suspect]

REACTIONS (1)
  - ACUTE MYOCARDIAL INFARCTION [None]
